FAERS Safety Report 9013746 (Version 1)
Quarter: 2013Q1

REPORT INFORMATION
  Report Type: Spontaneous
  Country: US (occurrence: None)
  Receive Date: 20130108
  Receipt Date: 20130108
  Transmission Date: 20140127
  Serious: Yes (Other)
  Sender: FDA-Public Use
  Company Number: None

PATIENT
  Age: 57 Year
  Sex: Female

DRUGS (1)
  1. FENTANYL [Suspect]
     Route: 002
     Dates: start: 20121116

REACTIONS (3)
  - Product adhesion issue [None]
  - Palpitations [None]
  - Product quality issue [None]
